FAERS Safety Report 21487140 (Version 1)
Quarter: 2022Q4

REPORT INFORMATION
  Report Type: Report from Study
  Country: US (occurrence: US)
  Receive Date: 20221020
  Receipt Date: 20221020
  Transmission Date: 20230113
  Serious: No
  Sender: FDA-Public Use
  Company Number: US-ABBVIE-4161629

PATIENT
  Sex: Female

DRUGS (1)
  1. SKYRIZI [Suspect]
     Active Substance: RISANKIZUMAB-RZAA
     Indication: Psoriasis
     Route: 058
     Dates: start: 20220909

REACTIONS (7)
  - Urinary tract infection [Unknown]
  - Dyspnoea [Unknown]
  - Pain [Unknown]
  - Pruritus [Unknown]
  - Burning sensation [Unknown]
  - Blood urine present [Unknown]
  - Erythema [Unknown]

NARRATIVE: CASE EVENT DATE: 20220101
